FAERS Safety Report 10249126 (Version 1)
Quarter: 2014Q2

REPORT INFORMATION
  Report Type: Spontaneous
  Country: IR (occurrence: None)
  Receive Date: 20140618
  Receipt Date: 20140618
  Transmission Date: 20141212
  Serious: Yes (Other)
  Sender: FDA-Public Use
  Company Number: FK201402321

PATIENT
  Age: 24 Year
  Sex: Female

DRUGS (13)
  1. HEPARIN SODIUM [Suspect]
     Indication: PRODUCT USED FOR UNKNOWN INDICATION
  2. SODIUM BICARBONATE [Suspect]
     Indication: METABOLIC ACIDOSIS
     Dosage: 44 MILLIEQUIVALENTS, 1 IN 15 MIN, INTRAVENOUS
     Route: 042
  3. VANCOMYCIN (MANUFACTURER UNKNOWN) (VANCOMYCIN) (VANCOMYCIN) [Suspect]
     Indication: PNEUMONIA
  4. MEROPENEM [Suspect]
     Indication: PNEUMONIA
  5. N-ACETYLCYSTEINE (ACETYLCYSTEINE) [Concomitant]
  6. VITAMIN C (ASCORBIC ACID) [Concomitant]
  7. NORMAL SALINE (SODIUM CHLORIDE) [Concomitant]
  8. DOPAMINE (DOPAMINE) [Concomitant]
  9. NOREPINEPHRINE (NOREPINEPHRINE) [Concomitant]
  10. DIGOXIN (DIGOXIN) [Concomitant]
  11. GLUCAGON (GLUCAGON) [Concomitant]
  12. MAGNESIUM SULPHATE (MAGNESIUM SULPHATE /01097001/) [Concomitant]
  13. VITAMIN E (TOCOPHERYL ACETATE) [Concomitant]

REACTIONS (4)
  - Hypokalaemia [None]
  - Haemoglobin abnormal [None]
  - Cardiac arrest [None]
  - Thrombocytopenia [None]
